FAERS Safety Report 18675473 (Version 1)
Quarter: 2020Q4

REPORT INFORMATION
  Report Type: Spontaneous
  Country: US (occurrence: US)
  Receive Date: 20201229
  Receipt Date: 20201229
  Transmission Date: 20210114
  Serious: No
  Sender: FDA-Public Use
  Company Number: US-GLENMARK PHARMACEUTICALS-2020GMK050982

PATIENT

DRUGS (2)
  1. VERAPAMIL [Suspect]
     Active Substance: VERAPAMIL HYDROCHLORIDE
     Indication: HEADACHE
     Dosage: 120 MILLIGRAM, OD
     Route: 048
     Dates: start: 20201016
  2. INDOMETHACIN CAPSULES USP, 25MG [Suspect]
     Active Substance: INDOMETHACIN
     Indication: HEADACHE
     Dosage: 25 MILLIGRAM, TID
     Route: 048
     Dates: start: 20200611

REACTIONS (2)
  - Drug ineffective for unapproved indication [Unknown]
  - Headache [Unknown]

NARRATIVE: CASE EVENT DATE: 2020
